FAERS Safety Report 9267990 (Version 1)
Quarter: 2013Q2

REPORT INFORMATION
  Report Type: Spontaneous
  Country: US (occurrence: US)
  Receive Date: 20130502
  Receipt Date: 20130502
  Transmission Date: 20140414
  Serious: Yes (Hospitalization)
  Sender: FDA-Public Use
  Company Number: US-ALEXION-A201201508

PATIENT
  Sex: Male
  Weight: 25.85 kg

DRUGS (12)
  1. SOLIRIS 300MG [Suspect]
     Indication: HAEMOLYTIC URAEMIC SYNDROME
     Dosage: 300 MG, Q2W
     Route: 042
  2. CATAPRES [Concomitant]
     Indication: HYPERTENSION
     Dosage: 0.3 MG PATCH, 3 PATCHES, CHANGE WEEKLY
     Route: 062
  3. SODIUM CHLORIDE [Concomitant]
     Dosage: 250 ML, Q2W
     Route: 042
  4. HEPARIN [Concomitant]
     Dosage: 1000 UNIT/ML WEEKLY
     Route: 042
  5. LIDOCAINE L-M-X4 [Concomitant]
     Dosage: 4%, APPLY TO AFFECTED AREA QD
     Route: 061
  6. COREG [Concomitant]
     Dosage: 12.5 MG, BID WITH MEALS
     Route: 048
  7. VEETIDS [Concomitant]
     Dosage: 250 MG, Q 12 HRS.
     Route: 048
  8. LONITEN [Concomitant]
     Dosage: 2.5 MG, QD
  9. APRESOLINE [Concomitant]
     Dosage: 50 MG BID
     Route: 048
  10. TENORMIN [Concomitant]
     Dosage: 25 MG, 3 Q AM
     Route: 048
  11. VITAMIN D3 [Concomitant]
     Dosage: 1000 IU, 4 Q AM
     Route: 048
  12. ZOFRAN [Concomitant]
     Dosage: 4 MG, UNK
     Route: 048

REACTIONS (2)
  - Hypertension [Recovering/Resolving]
  - Neck pain [Recovered/Resolved]
